FAERS Safety Report 4700582-6 (Version None)
Quarter: 2005Q2

REPORT INFORMATION
  Report Type: 
  Country: None (occurrence: None)
  Receive Date: 20050627
  Receipt Date: 20050616
  Transmission Date: 20051028
  Serious: Yes (Hospitalization)
  Sender: FDA-Public Use
  Company Number: ZONI002183

PATIENT
  Sex: Female

DRUGS (13)
  1. ZONISAMIDE [Suspect]
     Dosage: 600 MG, 1 IN 1 D, ORAL
     Route: 048
     Dates: end: 20050404
  2. LEMONAMIN (HALOPERIDOL) [Concomitant]
  3. STADORF (SULTOPRIDE HYDROCHLORIDE) [Concomitant]
  4. PROTHIADEN [Concomitant]
  5. E-CYSTEN (L-CYSTEINE ETHYL ESTER, HYDROCHLORIDE) [Concomitant]
  6. BICAMOL (BIPERIDEN HYDROCHLORIDE) [Concomitant]
  7. PAKISONAL (TRIHEXYPHENIDYL HDYROCHLORIDE) [Concomitant]
  8. GLORIAMIN (GLORIAMN) [Concomitant]
  9. RISPERDAL [Concomitant]
  10. LEVOTOMIN (LEVOMEPROMAZINE MALEATE) [Concomitant]
  11. NITRAZEPAM [Concomitant]
  12. LOSIZOPILON (ZOTEPINE) [Concomitant]
  13. CLONAZEPAM [Concomitant]

REACTIONS (3)
  - DRUG HYPERSENSITIVITY [None]
  - NEUROLOGICAL SYMPTOM [None]
  - PYREXIA [None]
